FAERS Safety Report 6521329-7 (Version None)
Quarter: 2009Q4

REPORT INFORMATION
  Report Type: 
  Country: None (occurrence: None)
  Receive Date: 20091230
  Receipt Date: 20091221
  Transmission Date: 20100525
  Serious: Yes (Other)
  Sender: FDA-Public Use
  Company Number: US-JNJFOC-20091005023

PATIENT
  Sex: Female
  Weight: 125.19 kg

DRUGS (1)
  1. RISPERDAL CONSTA [Suspect]
     Indication: SCHIZOAFFECTIVE DISORDER
     Route: 065

REACTIONS (3)
  - BENIGN INTRACRANIAL HYPERTENSION [None]
  - CATARACT [None]
  - INAPPROPRIATE SCHEDULE OF DRUG ADMINISTRATION [None]
